FAERS Safety Report 9749322 (Version 2)
Quarter: 2013Q4

REPORT INFORMATION
  Report Type: Spontaneous
  Country: JP (occurrence: JP)
  Receive Date: 20131212
  Receipt Date: 20131217
  Transmission Date: 20140711
  Serious: Yes (Death)
  Sender: FDA-Public Use
  Company Number: JP-CELGENEUS-087-21660-13121740

PATIENT
  Age: 56 Year
  Sex: Female
  Weight: 46 kg

DRUGS (7)
  1. ABRAXANE [Suspect]
     Indication: GASTRIC CANCER
     Route: 041
     Dates: start: 20130820, end: 20130820
  2. ABRAXANE [Suspect]
     Route: 041
     Dates: start: 20130910, end: 20130910
  3. DECADRON [Concomitant]
     Indication: PRODUCT USED FOR UNKNOWN INDICATION
     Dosage: 8 MILLIGRAM
     Route: 041
     Dates: start: 20130820, end: 20130910
  4. TRAMAL [Concomitant]
     Indication: CANCER PAIN
     Dosage: 50 MILLIGRAM
     Route: 048
     Dates: start: 20130903, end: 20130910
  5. NOVAMIN [Concomitant]
     Indication: NAUSEA
     Dosage: 15 MILLIGRAM
     Route: 048
     Dates: start: 20130903, end: 20130917
  6. LAXOBERON [Concomitant]
     Indication: CONSTIPATION
     Route: 048
     Dates: start: 20130903
  7. OPSO [Concomitant]
     Indication: CANCER PAIN
     Dosage: 20 MILLIGRAM
     Route: 048
     Dates: start: 20130910, end: 20130917

REACTIONS (2)
  - Gastrointestinal perforation [Fatal]
  - Peritonitis [Fatal]
